FAERS Safety Report 4376963-X (Version None)
Quarter: 2004Q2

REPORT INFORMATION
  Report Type: 
  Country: None (occurrence: None)
  Receive Date: 20040614
  Receipt Date: 20040603
  Transmission Date: 20050107
  Serious: Yes (Other)
  Sender: FDA-Public Use
  Company Number: FR-AMGEN-UK078796

PATIENT
  Age: 75 Year
  Sex: Female

DRUGS (2)
  1. ARANESP [Suspect]
     Indication: DIALYSIS
     Route: 042
     Dates: start: 20020701, end: 20030901
  2. NEORECORMON [Concomitant]
     Route: 058
     Dates: start: 20030901

REACTIONS (4)
  - ANTI-ERYTHROPOIETIN ANTIBODY POSITIVE [None]
  - APLASIA PURE RED CELL [None]
  - BLOOD PARATHYROID HORMONE INCREASED [None]
  - COOMBS TEST POSITIVE [None]
